FAERS Safety Report 7221236-0 (Version None)
Quarter: 2011Q1

REPORT INFORMATION
  Report Type: 
  Country: None (occurrence: None)
  Receive Date: 20110112
  Receipt Date: 20110103
  Transmission Date: 20110831
  Serious: Yes (Death)
  Sender: FDA-Public Use
  Company Number: US-SANOFI-AVENTIS-2011SA000981

PATIENT
  Sex: Female

DRUGS (1)
  1. PLAQUENIL [Suspect]
     Route: 065

REACTIONS (1)
  - DEATH [None]
